FAERS Safety Report 8417467-4 (Version None)
Quarter: 2012Q2

REPORT INFORMATION
  Report Type: 
  Country: None (occurrence: None)
  Receive Date: 20120606
  Receipt Date: 20120531
  Transmission Date: 20120825
  Serious: Yes (Hospitalization)
  Sender: FDA-Public Use
  Company Number: PHHY2012IN047008

PATIENT
  Age: 22 Year
  Sex: Male

DRUGS (4)
  1. RIFAMPICIN [Suspect]
     Dosage: 450 MG, UNK
  2. ISONIAZID [Concomitant]
     Dosage: 300 MG, UNK
  3. PYRAZINAMIDE [Concomitant]
     Dosage: 1500 MG, UNK
  4. ETHAMBUTOL HYDROCHLORIDE [Concomitant]
     Dosage: 800 MG, UNK

REACTIONS (7)
  - DEEP VEIN THROMBOSIS [None]
  - PULMONARY EMBOLISM [None]
  - CHEST PAIN [None]
  - OEDEMA PERIPHERAL [None]
  - DYSPNOEA [None]
  - PAIN IN EXTREMITY [None]
  - BLOOD PRESSURE DECREASED [None]
